FAERS Safety Report 11103893 (Version 2)
Quarter: 2015Q2

REPORT INFORMATION
  Report Type: Spontaneous
  Country: CA (occurrence: None)
  Receive Date: 20150507
  Receipt Date: 20150522
  Transmission Date: 20150821
  Serious: Yes (Hospitalization)
  Sender: FDA-Public Use
  Company Number: 2015COV00095

PATIENT
  Sex: Male

DRUGS (4)
  1. ARAVA [Suspect]
     Active Substance: LEFLUNOMIDE
     Route: 048
     Dates: start: 201411
  2. PLAQUENIL [Suspect]
     Active Substance: HYDROXYCHLOROQUINE SULFATE
     Route: 048
     Dates: start: 201411
  3. SULFASALAZINE. [Concomitant]
     Active Substance: SULFASALAZINE
  4. INH (ISONIAZID) [Concomitant]
     Active Substance: ISONIAZID

REACTIONS (6)
  - Pneumonia [None]
  - Therapeutic response decreased [None]
  - Arthralgia [None]
  - C-reactive protein increased [None]
  - Joint swelling [None]
  - Tuberculin test positive [None]

NARRATIVE: CASE EVENT DATE: 20150419
